FAERS Safety Report 17457273 (Version 1)
Quarter: 2020Q1

REPORT INFORMATION
  Report Type: Report from Study
  Country: None (occurrence: US)
  Receive Date: 20200225
  Receipt Date: 20200225
  Transmission Date: 20200409
  Serious: Yes (Other)
  Sender: FDA-Public Use
  Company Number: US-ABBVIE-20K-163-3291071-00

PATIENT
  Sex: Male

DRUGS (1)
  1. VENCLEXTA [Suspect]
     Active Substance: VENETOCLAX
     Indication: B-CELL LYMPHOMA
     Dosage: BY MOUTH EVERY DAY WITH FOOD AND WATER
     Route: 048

REACTIONS (3)
  - Parkinson^s disease [Unknown]
  - Transfusion [Unknown]
  - Off label use [Unknown]
